FAERS Safety Report 4490254-8 (Version None)
Quarter: 2004Q4

REPORT INFORMATION
  Report Type: 
  Country: None (occurrence: None)
  Receive Date: 20041028
  Receipt Date: 20041015
  Transmission Date: 20050328
  Serious: Yes (Death, Hospitalization, Other)
  Sender: FDA-Public Use
  Company Number: 2004079530

PATIENT
  Sex: Male

DRUGS (12)
  1. TIKOSYN [Suspect]
     Indication: ATRIAL FIBRILLATION
     Dosage: 0.25 MG (0.125 MG, 2 IN 1 D), ORAL
     Route: 048
     Dates: end: 20040901
  2. MAGNESIUM HYDROXIDE (MAGNESIUM HYDROXIDE) [Concomitant]
  3. OXYGEN (OXYGEN) [Concomitant]
  4. MORPHINE SULFATE [Concomitant]
  5. CARVEDIILOL (CARVEDILOL) [Concomitant]
  6. HYDRALAZINE HCL TAB [Concomitant]
  7. MAGNESIUM OXIDE (MAGNESIUM OXIDE) [Concomitant]
  8. METAMUCIL ^PROCTER + GAMBLE^  (GLUCOSE MONOHYDRATE, ISPAGULA HUSK) [Concomitant]
  9. ISOSORBIDE MONONITRATE [Concomitant]
  10. FUROSEMIDE [Concomitant]
  11. DOCUSATE SODIUM (DOCUSATE SODIM) [Concomitant]
  12. LEVOTHYROXINE SODIUM [Concomitant]

REACTIONS (5)
  - ABDOMINAL SYMPTOM [None]
  - CARDIAC FAILURE [None]
  - CONDITION AGGRAVATED [None]
  - HEPATIC FAILURE [None]
  - RENAL FAILURE [None]
